FAERS Safety Report 19490171 (Version 2)
Quarter: 2021Q3

REPORT INFORMATION
  Report Type: Spontaneous
  Country: CN (occurrence: CN)
  Receive Date: 20210705
  Receipt Date: 20210707
  Transmission Date: 20211014
  Serious: Yes (Hospitalization, Other)
  Sender: FDA-Public Use
  Company Number: CN-009507513-2106CHN007516

PATIENT
  Age: 87 Year
  Sex: Female
  Weight: 45 kg

DRUGS (3)
  1. TIENAM [Suspect]
     Active Substance: CILASTATIN SODIUM\IMIPENEM
     Indication: CHEST PAIN
     Dosage: 1000 MILLIGRAM, TID
     Route: 041
     Dates: start: 20210603, end: 20210605
  2. SODIUM CHLORIDE. [Concomitant]
     Active Substance: SODIUM CHLORIDE
     Dosage: 50 MILLILITER, TID; INDICATION: SOLVENT
     Route: 041
     Dates: start: 20210603, end: 20210604
  3. SODIUM CHLORIDE. [Suspect]
     Active Substance: SODIUM CHLORIDE
     Dosage: 100 MILLILITER, TID; INDICATION: SOLVENT
     Route: 041
     Dates: start: 20210605, end: 20210605

REACTIONS (3)
  - Liver injury [Recovering/Resolving]
  - Renal impairment [Recovering/Resolving]
  - Product use in unapproved indication [Unknown]

NARRATIVE: CASE EVENT DATE: 20210603
